FAERS Safety Report 5919324-1 (Version None)
Quarter: 2008Q4

REPORT INFORMATION
  Report Type: 
  Country: None (occurrence: None)
  Receive Date: 20081015
  Receipt Date: 20081006
  Transmission Date: 20090506
  Serious: Yes (Hospitalization)
  Sender: FDA-Public Use
  Company Number: PHHY2008BR24039

PATIENT
  Age: 76 Year
  Sex: Female

DRUGS (2)
  1. STARLIX [Suspect]
     Indication: DIABETES MELLITUS
     Dosage: 120 MG/DAY ; 1 TABLET/DAY
     Route: 048
     Dates: start: 20050101
  2. STARLIX [Suspect]
     Dosage: 360 MG/DAY ; 3 TABLETS/DAY
     Route: 048
     Dates: start: 20060101

REACTIONS (2)
  - MYOCARDIAL INFARCTION [None]
  - SURGERY [None]
